FAERS Safety Report 7899000 (Version 2)
Quarter: 2013Q4

REPORT INFORMATION
  Report Type: Spontaneous
  Country: AU (occurrence: None)
  Receive Date: 20110323
  Receipt Date: 20131119
  Transmission Date: 20140711
  Serious: Yes (Hospitalization, Other)
  Sender: FDA-Public Use
  Company Number: 20110190

PATIENT
  Age: 60 Year
  Sex: Female

DRUGS (4)
  1. METHYLENE BLUE [Suspect]
     Indication: PARATHYROID GLAND OPERATION
     Dosage: 7.5 MG/KG, INTRAVENOUS
  2. FLUOXETINE [Concomitant]
  3. BECLAMETHASONE NASAL SPRAY [Concomitant]
  4. PROPOXYPHENE HYDROCHLORIDE AND ACETAMINOPHEN [Concomitant]

REACTIONS (11)
  - Serotonin syndrome [None]
  - Off label use [None]
  - Nervous system disorder [None]
  - Vomiting [None]
  - Skin discolouration [None]
  - Respiratory acidosis [None]
  - Methaemoglobinaemia [None]
  - Chromaturia [None]
  - Haemodilution [None]
  - Haemoglobin decreased [None]
  - Speech disorder [None]
